FAERS Safety Report 5619993-X (Version None)
Quarter: 2008Q1

REPORT INFORMATION
  Report Type: 
  Country: None (occurrence: None)
  Receive Date: 20080208
  Receipt Date: 20080129
  Transmission Date: 20080703
  Serious: Yes (Other)
  Sender: FDA-Public Use
  Company Number: US-ROCHE-527497

PATIENT
  Sex: Male
  Weight: 72.8 kg

DRUGS (1)
  1. ACCUTANE [Suspect]
     Route: 065
     Dates: start: 20021121, end: 20030403

REACTIONS (14)
  - ANAL FISSURE [None]
  - ANXIETY [None]
  - ARTHROPATHY [None]
  - BLOOD CHOLESTEROL INCREASED [None]
  - BLOOD TRIGLYCERIDES INCREASED [None]
  - CHAPPED LIPS [None]
  - CHRONIC FATIGUE SYNDROME [None]
  - CROHN'S DISEASE [None]
  - DEPRESSION [None]
  - DUODENITIS [None]
  - GASTRITIS [None]
  - INFLAMMATORY BOWEL DISEASE [None]
  - PANIC ATTACK [None]
  - PHOBIA [None]
